FAERS Safety Report 24423624 (Version 1)
Quarter: 2024Q4

REPORT INFORMATION
  Report Type: Spontaneous
  Country: US (occurrence: None)
  Receive Date: 20241009
  Receipt Date: 20241009
  Transmission Date: 20250115
  Serious: Yes (Life-Threatening, Hospitalization)
  Sender: Public
  Company Number: None

PATIENT
  Sex: Male
  Weight: 72.7 kg

DRUGS (7)
  1. TAVNEOS [Suspect]
     Active Substance: AVACOPAN
     Indication: Glomerulonephritis
     Dosage: FREQUENCY : DAILY;?
     Dates: start: 20240722, end: 20241005
  2. Prednisone 20 mg daily [Concomitant]
  3. Atovaquone 1500 mg daily [Concomitant]
  4. nifedipine 30 mg daily [Concomitant]
  5. Simvastatin 10 mg nightly [Concomitant]
  6. tramadol 50 mg every 6 hours as needed [Concomitant]
  7. Zanubrutinib 80 mg twice daily [Concomitant]

REACTIONS (1)
  - Rash [None]
